FAERS Safety Report 5127448-4 (Version None)
Quarter: 2006Q4

REPORT INFORMATION
  Report Type: 
  Country: None (occurrence: None)
  Receive Date: 20061016
  Receipt Date: 20060918
  Transmission Date: 20070319
  Serious: Yes (Hospitalization)
  Sender: FDA-Public Use
  Company Number: CN-BRACCO-BRO-010566

PATIENT
  Sex: Female

DRUGS (1)
  1. MULTIHANCE [Suspect]
     Route: 042
     Dates: start: 20060914, end: 20060914

REACTIONS (2)
  - ANAPHYLACTIC REACTION [None]
  - MYOCARDIAL INFARCTION [None]
